FAERS Safety Report 14166895 (Version 1)
Quarter: 2017Q4

REPORT INFORMATION
  Report Type: Report from Study
  Country: None (occurrence: US)
  Receive Date: 20171108
  Receipt Date: 20171108
  Transmission Date: 20180321
  Serious: Yes (Other)
  Sender: FDA-Public Use
  Company Number: US-ABBVIE-17K-163-2153791-00

PATIENT
  Age: 68 Year
  Sex: Female

DRUGS (1)
  1. HUMIRA [Suspect]
     Active Substance: ADALIMUMAB
     Indication: PRODUCT USED FOR UNKNOWN INDICATION
     Route: 058

REACTIONS (7)
  - Concussion [Unknown]
  - Impaired healing [Unknown]
  - Swelling [Unknown]
  - Loss of consciousness [Unknown]
  - Fractured coccyx [Unknown]
  - Eye contusion [Unknown]
  - Fall [Unknown]

NARRATIVE: CASE EVENT DATE: 2017
